FAERS Safety Report 9375140 (Version 1)
Quarter: 2013Q2

REPORT INFORMATION
  Report Type: Spontaneous
  Country: FR (occurrence: FR)
  Receive Date: 20130628
  Receipt Date: 20130628
  Transmission Date: 20140414
  Serious: Yes (Other)
  Sender: FDA-Public Use
  Company Number: FR-009507513-1305FRA002932

PATIENT
  Age: 14 Year
  Sex: Male
  Weight: 63 kg

DRUGS (2)
  1. SINGULAIR [Suspect]
     Indication: ASTHMA
     Dosage: 10 MG, QD
     Dates: start: 2002, end: 201305
  2. VENTOLINE (ALBUTEROL) [Concomitant]

REACTIONS (4)
  - Uveitis [Not Recovered/Not Resolved]
  - Optic neuritis [Not Recovered/Not Resolved]
  - Drug dependence [Unknown]
  - Hypersensitivity [Unknown]
